FAERS Safety Report 15306270 (Version 2)
Quarter: 2018Q3

REPORT INFORMATION
  Report Type: Spontaneous
  Country: US (occurrence: US)
  Receive Date: 20180822
  Receipt Date: 20180827
  Transmission Date: 20181010
  Serious: No
  Sender: FDA-Public Use
  Company Number: US-PFIZER INC-2018335986

PATIENT
  Age: 75 Year
  Sex: Female
  Weight: 49.9 kg

DRUGS (1)
  1. ZOLOFT [Suspect]
     Active Substance: SERTRALINE HYDROCHLORIDE
     Indication: ANXIETY
     Dosage: 25 MG, 1X/DAY(25 MG TABLET BY MOUTH 1 TIME DAILY)
     Route: 048

REACTIONS (4)
  - Headache [Recovering/Resolving]
  - Drug clearance decreased [Unknown]
  - Memory impairment [Recovered/Resolved]
  - Drug effect delayed [Unknown]

NARRATIVE: CASE EVENT DATE: 201807
